FAERS Safety Report 7812284-8 (Version None)
Quarter: 2011Q4

REPORT INFORMATION
  Report Type: 
  Country: None (occurrence: None)
  Receive Date: 20111013
  Receipt Date: 20111004
  Transmission Date: 20120403
  Serious: Yes (Other)
  Sender: FDA-Public Use
  Company Number: US-SANOFI-AVENTIS-2011SA065677

PATIENT
  Age: 67 Year
  Sex: Male

DRUGS (4)
  1. PLAVIX [Suspect]
     Indication: STENT PLACEMENT
     Route: 065
     Dates: start: 20010101, end: 20110901
  2. CISPLATIN [Suspect]
     Indication: HEAD AND NECK CANCER
     Route: 065
     Dates: start: 20110425
  3. ERBITUX [Suspect]
     Indication: HEAD AND NECK CANCER
     Route: 065
     Dates: start: 20110425, end: 20110919
  4. DOCETAXEL [Suspect]
     Indication: HEAD AND NECK CANCER
     Route: 065
     Dates: start: 20110425

REACTIONS (4)
  - ANAEMIA [None]
  - GLOMERULONEPHRITIS RAPIDLY PROGRESSIVE [None]
  - THROMBOCYTOPENIA [None]
  - RENAL FAILURE [None]
